FAERS Safety Report 22600522 (Version 3)
Quarter: 2025Q2

REPORT INFORMATION
  Report Type: Report from Study
  Country: US (occurrence: US)
  Receive Date: 20230614
  Receipt Date: 20250508
  Transmission Date: 20250716
  Serious: No
  Sender: NOVARTIS
  Company Number: US-002147023-NVSC2023US131959

PATIENT
  Sex: Female

DRUGS (1)
  1. COSENTYX [Suspect]
     Active Substance: SECUKINUMAB
     Indication: Psoriasis
     Dosage: 300 MG, QW (LOADING DOSE: INJECT 300 MG SUBCUTANEOUSLY ON WEEKS 0, 1, 2 AND 3. MAINTENANCE DOSE: INJ
     Route: 058

REACTIONS (1)
  - Maternal exposure during breast feeding [Unknown]
